FAERS Safety Report 15144087 (Version 2)
Quarter: 2019Q2

REPORT INFORMATION
  Report Type: Spontaneous
  Country: AT (occurrence: AT)
  Receive Date: 20180713
  Receipt Date: 20190408
  Transmission Date: 20190711
  Serious: Yes (Other)
  Sender: FDA-Public Use
  Company Number: AT-INCYTE CORPORATION-2018IN007014

PATIENT

DRUGS (1)
  1. JAKAVI [Suspect]
     Active Substance: RUXOLITINIB
     Indication: PRIMARY MYELOFIBROSIS
     Dosage: UNK
     Route: 065

REACTIONS (3)
  - Second primary malignancy [Recovered/Resolved]
  - Leukaemic lymphoma [Unknown]
  - Diffuse large B-cell lymphoma [Recovered/Resolved]
